FAERS Safety Report 17523624 (Version 5)
Quarter: 2020Q2

REPORT INFORMATION
  Report Type: Spontaneous
  Country: US (occurrence: US)
  Receive Date: 20200310
  Receipt Date: 20200408
  Transmission Date: 20200713
  Serious: No
  Sender: FDA-Public Use
  Company Number: US-PFIZER INC-2020104420

PATIENT
  Age: 79 Year
  Sex: Female
  Weight: 42.18 kg

DRUGS (4)
  1. CORTEF [Suspect]
     Active Substance: HYDROCORTISONE
     Indication: BLOOD ELECTROLYTES
     Dosage: UNK
     Dates: start: 20200301
  2. CORTEF [Suspect]
     Active Substance: HYDROCORTISONE
     Dosage: 5 MG, UNK
  3. CORTEF [Suspect]
     Active Substance: HYDROCORTISONE
     Indication: ADDISON^S DISEASE
     Dosage: 2.5 MG, 2X/DAY (MORNING/EVENING WITH MILK AFTER EATING)
     Route: 048
     Dates: start: 20031015
  4. CORTEF [Suspect]
     Active Substance: HYDROCORTISONE
     Dosage: 2.5 MG, DAILY

REACTIONS (12)
  - Heart sounds abnormal [Not Recovered/Not Resolved]
  - Energy increased [Not Recovered/Not Resolved]
  - Palpitations [Not Recovered/Not Resolved]
  - Nausea [Unknown]
  - General physical condition abnormal [Not Recovered/Not Resolved]
  - Product complaint [Not Recovered/Not Resolved]
  - Cardiac disorder [Unknown]
  - Liver disorder [Unknown]
  - Restlessness [Not Recovered/Not Resolved]
  - Drug ineffective [Unknown]
  - Hepatic pain [Not Recovered/Not Resolved]
  - Fatigue [Unknown]

NARRATIVE: CASE EVENT DATE: 20200302
